FAERS Safety Report 10626125 (Version 2)
Quarter: 2014Q4

REPORT INFORMATION
  Report Type: Spontaneous
  Country: US (occurrence: US)
  Receive Date: 20141204
  Receipt Date: 20141205
  Transmission Date: 20150529
  Serious: No
  Sender: FDA-Public Use
  Company Number: US-009507513-1412USA002103

PATIENT
  Age: 60 Year
  Sex: Female

DRUGS (1)
  1. NASONEX [Suspect]
     Active Substance: MOMETASONE FUROATE
     Indication: NASAL CONGESTION
     Dosage: 50 MICROGRAM, 2 SPRAYS ONCE DAILY
     Route: 045

REACTIONS (2)
  - Rhinalgia [Recovering/Resolving]
  - Skin discolouration [Recovering/Resolving]
